FAERS Safety Report 6813696-1 (Version None)
Quarter: 2010Q3

REPORT INFORMATION
  Report Type: 
  Country: None (occurrence: None)
  Receive Date: 20100701
  Receipt Date: 20100623
  Transmission Date: 20110219
  Serious: Yes (Hospitalization, Other)
  Sender: FDA-Public Use
  Company Number: BE-BAXTER-2010BH016337

PATIENT
  Age: 42 Year
  Sex: Female
  Weight: 65 kg

DRUGS (14)
  1. EXTRANEAL [Suspect]
     Indication: PERITONEAL DIALYSIS
     Route: 033
     Dates: start: 20080602, end: 20090819
  2. EXTRANEAL [Suspect]
     Route: 033
     Dates: start: 20090819, end: 20100528
  3. BALANCE 2.3% (FRESENIUS) [Suspect]
     Indication: PERITONEAL DIALYSIS
     Route: 033
     Dates: start: 20090819, end: 20100528
  4. BISOPROLOL FUMARATE [Concomitant]
     Indication: PRODUCT USED FOR UNKNOWN INDICATION
     Route: 048
     Dates: start: 20090923
  5. MICERA [Concomitant]
     Indication: PRODUCT USED FOR UNKNOWN INDICATION
     Dates: start: 20090324
  6. VITAMINS [Concomitant]
     Indication: PRODUCT USED FOR UNKNOWN INDICATION
     Route: 048
     Dates: start: 20080602
  7. ASAFLOW [Concomitant]
     Indication: PRODUCT USED FOR UNKNOWN INDICATION
     Route: 048
     Dates: start: 20080520
  8. FERROUS SULFATE [Concomitant]
     Indication: PRODUCT USED FOR UNKNOWN INDICATION
     Route: 048
     Dates: start: 20071016
  9. DESOGESTREL AND ETHINYL ESTRADIOL [Concomitant]
     Indication: PRODUCT USED FOR UNKNOWN INDICATION
     Route: 048
  10. ELTHYRONE [Concomitant]
     Indication: PRODUCT USED FOR UNKNOWN INDICATION
     Route: 048
  11. POTASSIUM GLUCONATE TAB [Concomitant]
     Indication: HYPOKALAEMIA
     Route: 048
     Dates: start: 20100507
  12. MESALAZINE [Concomitant]
     Indication: DIARRHOEA
     Dates: start: 20100507
  13. QUESTRAN [Concomitant]
     Indication: DIARRHOEA
     Route: 048
     Dates: start: 20100510
  14. MOTILIUM [Concomitant]
     Indication: VOMITING
     Dates: start: 20100510

REACTIONS (6)
  - DECREASED APPETITE [None]
  - DIARRHOEA [None]
  - INTESTINAL OBSTRUCTION [None]
  - PERITONEAL DIALYSIS COMPLICATION [None]
  - PERITONITIS BACTERIAL [None]
  - VOMITING [None]
